FAERS Safety Report 4629368-8 (Version None)
Quarter: 2005Q2

REPORT INFORMATION
  Report Type: 
  Country: None (occurrence: None)
  Receive Date: 20050405
  Receipt Date: 20050321
  Transmission Date: 20051028
  Serious: Yes (Hospitalization)
  Sender: FDA-Public Use
  Company Number: CAP05000110

PATIENT
  Sex: Female

DRUGS (1)
  1. ETIDRONATE DISODIUM [Suspect]
     Indication: OSTEOPOROSIS POSTMENOPAUSAL
     Dosage: 1 TABLET ONCE DAILY , ORAL
     Route: 048
     Dates: start: 20040101

REACTIONS (3)
  - OESOPHAGEAL CARCINOMA [None]
  - OESOPHAGEAL DISORDER [None]
  - OESOPHAGEAL PAIN [None]
